FAERS Safety Report 4379296-0 (Version None)
Quarter: 2004Q2

REPORT INFORMATION
  Report Type: 
  Country: None (occurrence: None)
  Receive Date: 20040614
  Receipt Date: 20040602
  Transmission Date: 20050107
  Serious: Yes (Death)
  Sender: FDA-Public Use
  Company Number: 2004212820US

PATIENT
  Sex: Male
  Weight: 90.7 kg

DRUGS (2)
  1. XANAX [Suspect]
  2. ETHANOL(ETHANOL) [Suspect]

REACTIONS (12)
  - ATHEROSCLEROSIS [None]
  - CARDIOMEGALY [None]
  - CORONARY ARTERY OCCLUSION [None]
  - DRUG TOXICITY [None]
  - HAEMORRHAGE [None]
  - HEPATIC STEATOSIS [None]
  - HEPATOMEGALY [None]
  - LUNG DISORDER [None]
  - NEPHROSCLEROSIS [None]
  - OEDEMA [None]
  - PULMONARY OEDEMA [None]
  - RENAL DISORDER [None]
